FAERS Safety Report 20023423 (Version 1)
Quarter: 2021Q4

REPORT INFORMATION
  Report Type: Spontaneous
  Country: JP (occurrence: JP)
  Receive Date: 20211102
  Receipt Date: 20211102
  Transmission Date: 20220303
  Serious: Yes (Hospitalization)
  Sender: FDA-Public Use
  Company Number: JP-ELI_LILLY_AND_COMPANY-JP202110011792

PATIENT
  Age: 41 Year
  Sex: Female

DRUGS (21)
  1. ADCIRCA [Suspect]
     Active Substance: TADALAFIL
     Indication: Pulmonary hypertension
     Dosage: 20 MG, DAILY
     Route: 048
  2. UPTRAVI [Suspect]
     Active Substance: SELEXIPAG
     Indication: Pulmonary hypertension
     Dosage: UNK UNK, UNKNOWN
     Route: 065
  3. UPTRAVI [Suspect]
     Active Substance: SELEXIPAG
     Dosage: 2.8 MG, DAILY
     Route: 048
  4. UPTRAVI [Suspect]
     Active Substance: SELEXIPAG
     Dosage: 2.4 MG, DAILY
     Route: 048
  5. UPTRAVI [Suspect]
     Active Substance: SELEXIPAG
     Dosage: 2 MG, DAILY
     Route: 048
  6. UPTRAVI [Suspect]
     Active Substance: SELEXIPAG
     Dosage: 2.4 MG, DAILY
     Route: 048
  7. UPTRAVI [Suspect]
     Active Substance: SELEXIPAG
     Dosage: 2.8 MG, DAILY
     Route: 048
  8. UPTRAVI [Suspect]
     Active Substance: SELEXIPAG
     Dosage: 3.2 MG, DAILY
     Route: 048
  9. OPSUMIT [Suspect]
     Active Substance: MACITENTAN
     Indication: Pulmonary hypertension
     Dosage: 10 MG, DAILY
     Route: 048
  10. TRACLEER [Suspect]
     Active Substance: BOSENTAN
     Indication: Pulmonary hypertension
     Dosage: 250 MG, DAILY
     Route: 048
  11. PREDNISOLONE [Concomitant]
     Active Substance: PREDNISOLONE
     Indication: Product used for unknown indication
     Dosage: UNK, UNKNOWN
     Route: 065
  12. PREDNISOLONE [Concomitant]
     Active Substance: PREDNISOLONE
     Dosage: 20 MG, UNKNOWN
     Route: 065
  13. PREDNISOLONE [Concomitant]
     Active Substance: PREDNISOLONE
     Dosage: 30 MG, UNKNOWN
     Route: 065
  14. PREDNISOLONE [Concomitant]
     Active Substance: PREDNISOLONE
     Dosage: 16 MG, UNKNOWN
     Route: 065
  15. PREDNISOLONE [Concomitant]
     Active Substance: PREDNISOLONE
     Dosage: 5.5 MG, UNKNOWN
     Route: 065
  16. AZATHIOPRINE [Concomitant]
     Active Substance: AZATHIOPRINE
     Indication: Product used for unknown indication
     Dosage: UNK, UNKNOWN
     Route: 065
  17. IMATINIB [IMATINIB MESILATE] [Concomitant]
     Indication: Product used for unknown indication
     Dosage: 200 MG, UNKNOWN
     Route: 065
  18. IMATINIB [IMATINIB MESILATE] [Concomitant]
     Dosage: 300 MG, UNKNOWN
     Route: 065
  19. IMATINIB [IMATINIB MESILATE] [Concomitant]
     Dosage: 400 MG, UNKNOWN
     Route: 065
  20. DILTIAZEM HYDROCHLORIDE [Concomitant]
     Active Substance: DILTIAZEM HYDROCHLORIDE
     Indication: Product used for unknown indication
     Dosage: 100 MG, UNKNOWN
     Route: 065
  21. DILTIAZEM HYDROCHLORIDE [Concomitant]
     Active Substance: DILTIAZEM HYDROCHLORIDE
     Dosage: 200 MG, UNKNOWN
     Route: 065

REACTIONS (18)
  - Enteritis [Unknown]
  - Atypical pneumonia [Unknown]
  - Herpes zoster [Unknown]
  - Pyrexia [Unknown]
  - Viral infection [Unknown]
  - Pyrexia [Unknown]
  - Arthralgia [Unknown]
  - Dyspnoea [Unknown]
  - Chronic myeloid leukaemia [Unknown]
  - Inflammation [Unknown]
  - Interstitial lung disease [Unknown]
  - Alopecia [Unknown]
  - Arthralgia [Unknown]
  - Coronary artery stenosis [Unknown]
  - Prinzmetal angina [Unknown]
  - Blood pressure decreased [Unknown]
  - Chest pain [Unknown]
  - Blood pressure decreased [Unknown]
